FAERS Safety Report 24903773 (Version 1)
Quarter: 2025Q1

REPORT INFORMATION
  Report Type: Spontaneous
  Country: AT (occurrence: AT)
  Receive Date: 20250130
  Receipt Date: 20250130
  Transmission Date: 20250409
  Serious: Yes (Other)
  Sender: ALEXION PHARMACEUTICALS
  Company Number: AT-ASTRAZENECA-202501EEA022413AT

PATIENT

DRUGS (1)
  1. LYNPARZA [Suspect]
     Active Substance: OLAPARIB

REACTIONS (4)
  - Metastases to lymph nodes [Unknown]
  - Blood creatinine increased [Unknown]
  - Urinary retention [Unknown]
  - Anaemia [Unknown]
